FAERS Safety Report 25990963 (Version 2)
Quarter: 2025Q4

REPORT INFORMATION
  Report Type: Spontaneous
  Country: JP (occurrence: JP)
  Receive Date: 20251103
  Receipt Date: 20251125
  Transmission Date: 20260119
  Serious: Yes (Hospitalization)
  Sender: EISAI
  Company Number: JP-Eisai-202509384_DVG_P_1

PATIENT
  Sex: Female

DRUGS (17)
  1. LEMBOREXANT [Suspect]
     Active Substance: LEMBOREXANT
     Indication: Insomnia
     Dosage: AT BEDTIME
     Route: 048
     Dates: start: 202405
  2. ZOLPIDEM TARTRATE [Suspect]
     Active Substance: ZOLPIDEM TARTRATE
     Indication: Insomnia
     Dosage: AT BEDTIME
     Route: 048
     Dates: start: 202405, end: 202405
  3. ETIZOLAM [Suspect]
     Active Substance: ETIZOLAM
     Indication: Anxiety
     Dosage: AFTER BREAKFAST, AT BEDTIME
     Route: 048
     Dates: start: 202505, end: 202505
  4. ETIZOLAM [Suspect]
     Active Substance: ETIZOLAM
     Indication: Restlessness
     Dosage: AT BEDTIME
     Route: 048
  5. RISPERIDONE [Suspect]
     Active Substance: RISPERIDONE
     Indication: Aggression
     Dosage: AT BEDTIME
     Route: 048
     Dates: start: 202405, end: 202405
  6. RISPERIDONE [Suspect]
     Active Substance: RISPERIDONE
     Indication: Agitation
     Dosage: AS NEEDED
     Route: 048
  7. METFORMIN HYDROCHLORIDE [Suspect]
     Active Substance: METFORMIN HYDROCHLORIDE
     Indication: Hyperglycaemia
     Dosage: AFTER BREAKFAST AND DINNER
     Route: 048
     Dates: start: 202405, end: 202405
  8. GLIMEPIRIDE [Suspect]
     Active Substance: GLIMEPIRIDE
     Indication: Hyperglycaemia
     Dosage: AFTER BREAKFAST, DINNER
     Route: 048
     Dates: start: 202405, end: 202405
  9. AMLODIPINE [Suspect]
     Active Substance: AMLODIPINE BESYLATE
     Indication: Hypertension
     Dosage: AFTER BREAKFAST
     Route: 048
     Dates: start: 202405, end: 202405
  10. AMLODIPINE [Suspect]
     Active Substance: AMLODIPINE BESYLATE
     Dosage: FREQUENCY UNKNOWN
     Route: 048
  11. LANSOPRAZOLE [Suspect]
     Active Substance: LANSOPRAZOLE
     Indication: Abdominal pain upper
     Dosage: AFTER BREAKFAST
     Route: 048
     Dates: start: 202405, end: 202405
  12. LANSOPRAZOLE [Suspect]
     Active Substance: LANSOPRAZOLE
     Indication: Nausea
  13. HERBALS [Suspect]
     Active Substance: HERBALS
     Indication: Agitation
     Dosage: BEFORE EACH MEAL
     Route: 048
     Dates: start: 202405, end: 202405
  14. HERBALS [Suspect]
     Active Substance: HERBALS
     Indication: Prophylaxis
  15. RAMELTEON [Concomitant]
     Active Substance: RAMELTEON
     Indication: Insomnia
     Dosage: AT BEDTIME
     Route: 048
     Dates: start: 202405
  16. SITAGLIPTIN [Concomitant]
     Active Substance: SITAGLIPTIN
     Indication: Hyperglycaemia
     Dosage: AFTER BREAKFAST
     Route: 048
     Dates: start: 202405
  17. ROSUVASTATIN [Concomitant]
     Active Substance: ROSUVASTATIN
     Indication: Hyperlipidaemia
     Dosage: AT BEDTIME
     Route: 048
     Dates: start: 202405

REACTIONS (8)
  - Somnolence [Recovered/Resolved]
  - Hypoglycaemia [Recovered/Resolved]
  - Hypotension [Recovered/Resolved]
  - Fall [Recovered/Resolved]
  - Activities of daily living decreased [Recovered/Resolved]
  - Anaemia [Recovered/Resolved]
  - Restlessness [Recovered/Resolved]
  - Drug ineffective [Unknown]

NARRATIVE: CASE EVENT DATE: 20240501
